FAERS Safety Report 8030138-1 (Version None)
Quarter: 2011Q4

REPORT INFORMATION
  Report Type: 
  Country: None (occurrence: None)
  Receive Date: 20111130
  Receipt Date: 20110629
  Transmission Date: 20120403
  Serious: Yes (Hospitalization, Other)
  Sender: FDA-Public Use
  Company Number: US201002003757

PATIENT
  Age: 65 Year
  Sex: Male
  Weight: 113.4 kg

DRUGS (6)
  1. ZOLOFT [Concomitant]
  2. BYETTA [Suspect]
     Dates: start: 20060701, end: 20070701
  3. LASIX [Concomitant]
  4. EXENATIDE UNK STRENGTH PEN, DISPOSABLE DEVICE (EXENATIDE PEN (UNKNOWN [Concomitant]
  5. TYLENOL /SCH/ (PARACETAMOL) [Concomitant]
  6. ZOCOR [Concomitant]

REACTIONS (1)
  - PANCREATITIS [None]
